FAERS Safety Report 24231698 (Version 1)
Quarter: 2024Q3

REPORT INFORMATION
  Report Type: Spontaneous
  Country: US (occurrence: US)
  Receive Date: 20240821
  Receipt Date: 20240821
  Transmission Date: 20241017
  Serious: No
  Sender: JOHNSON AND JOHNSON
  Company Number: US-JNJFOC-20240846297

PATIENT
  Age: 44 Year
  Sex: Male

DRUGS (3)
  1. SPRAVATO [Suspect]
     Active Substance: ESKETAMINE
     Indication: Depression
     Dosage: FEQQUENCY:  AS REQUIRED
     Dates: start: 20240805
  2. SPRAVATO [Suspect]
     Active Substance: ESKETAMINE
     Dates: start: 20240816
  3. SPRAVATO [Suspect]
     Active Substance: ESKETAMINE
     Dates: start: 202408

REACTIONS (2)
  - Headache [Recovered/Resolved]
  - Ocular hyperaemia [Recovered/Resolved]

NARRATIVE: CASE EVENT DATE: 20240801
